FAERS Safety Report 6756908-5 (Version None)
Quarter: 2010Q2

REPORT INFORMATION
  Report Type: 
  Country: None (occurrence: None)
  Receive Date: 20100604
  Receipt Date: 20100527
  Transmission Date: 20101027
  Serious: Yes (Hospitalization)
  Sender: FDA-Public Use
  Company Number: US-AMGEN-KDC403475

PATIENT
  Sex: Female

DRUGS (21)
  1. PANITUMUMAB [Suspect]
     Indication: COLORECTAL CANCER
     Route: 042
     Dates: start: 20090730
  2. AMG 102 - BLINDED [Suspect]
     Indication: NEOPLASM MALIGNANT
     Route: 042
     Dates: start: 20090730
  3. AMG 479 - BLINDED [Suspect]
     Indication: NEOPLASM
     Route: 042
     Dates: start: 20090730
  4. BACTRIM [Concomitant]
     Route: 061
  5. NYSTATIN [Concomitant]
     Route: 061
  6. DIMETICONE [Concomitant]
  7. FEXOFENADINE [Concomitant]
     Route: 048
  8. SYNTHROID [Concomitant]
  9. ATENOLOL [Concomitant]
  10. LASIX [Concomitant]
  11. LANTUS [Concomitant]
  12. HUMALOG [Concomitant]
  13. RANITIDINE [Concomitant]
  14. TYLENOL [Concomitant]
     Route: 048
  15. PROTONIX [Concomitant]
  16. LORAZEPAM [Concomitant]
     Route: 048
  17. COMPAZINE [Concomitant]
  18. VITAMIN D [Concomitant]
  19. RHINOCORT [Concomitant]
     Route: 055
  20. PROVIGIL [Concomitant]
  21. NASAL SALINE [Concomitant]
     Route: 045

REACTIONS (1)
  - DEEP VEIN THROMBOSIS [None]
